FAERS Safety Report 5712613-5 (Version None)
Quarter: 2008Q2

REPORT INFORMATION
  Report Type: 
  Country: None (occurrence: None)
  Receive Date: 20080422
  Receipt Date: 20080410
  Transmission Date: 20081010
  Serious: Yes (Hospitalization)
  Sender: FDA-Public Use
  Company Number: CN-BAYER-200816535GPV

PATIENT
  Age: 53 Year
  Sex: Female

DRUGS (1)
  1. AVELOX [Suspect]
     Indication: PNEUMONIA
     Route: 042
     Dates: start: 20080404, end: 20080406

REACTIONS (5)
  - ARTHRALGIA [None]
  - CHOKING [None]
  - COUGH [None]
  - HYPOAESTHESIA [None]
  - NEUROPATHY PERIPHERAL [None]
